FAERS Safety Report 12391303 (Version 1)
Quarter: 2016Q2

REPORT INFORMATION
  Report Type: Spontaneous
  Country: DE (occurrence: DE)
  Receive Date: 20160520
  Receipt Date: 20160520
  Transmission Date: 20160815
  Serious: Yes (Life-Threatening, Hospitalization, Other)
  Sender: FDA-Public Use
  Company Number: DE-BRISTOL-MYERS SQUIBB COMPANY-BMS-2016-037802

PATIENT
  Age: 85 Year
  Sex: Male
  Weight: 71 kg

DRUGS (7)
  1. RAMIPRIL. [Concomitant]
     Active Substance: RAMIPRIL
     Indication: HYPERTENSION
     Dosage: 7.5 MG, QD
     Route: 065
     Dates: start: 20070521, end: 20160420
  2. EZETROL [Concomitant]
     Active Substance: EZETIMIBE
     Indication: HYPERCHOLESTEROLAEMIA
     Dosage: 10 MG, QD
     Route: 065
     Dates: start: 20151030, end: 20160405
  3. ELIQUIS [Suspect]
     Active Substance: APIXABAN
     Indication: CEREBROVASCULAR ACCIDENT PROPHYLAXIS
     Dosage: 2.5 MG, BID
     Route: 065
     Dates: start: 20150910, end: 20160405
  4. ISOPTIN [Interacting]
     Active Substance: VERAPAMIL HYDROCHLORIDE
     Indication: ATRIAL FLUTTER
  5. CALCIUM SANDOZ FORTE D [Concomitant]
     Indication: OSTEOPENIA
     Dosage: 1000 MG, QD
     Route: 065
     Dates: start: 20040517, end: 20160420
  6. ISOPTIN [Interacting]
     Active Substance: VERAPAMIL HYDROCHLORIDE
     Indication: ATRIAL FIBRILLATION
     Dosage: 240 MG, UNK
     Route: 065
     Dates: start: 200302, end: 20160420
  7. DIGITOXIN [Concomitant]
     Active Substance: DIGITOXIN
     Indication: ATRIAL FIBRILLATION
     Dosage: 0.07 MG, UNK
     Route: 065
     Dates: start: 20140812, end: 20160420

REACTIONS (7)
  - Pleural effusion [None]
  - Haemoptysis [None]
  - Pyrexia [None]
  - Labelled drug-drug interaction medication error [Unknown]
  - Pulmonary oedema [None]
  - Pulmonary haemorrhage [Recovered/Resolved]
  - Cardiac failure [Recovered/Resolved]

NARRATIVE: CASE EVENT DATE: 20160326
